FAERS Safety Report 9137421 (Version 1)
Quarter: 2013Q1

REPORT INFORMATION
  Report Type: Spontaneous
  Country: US (occurrence: US)
  Receive Date: 20130304
  Receipt Date: 20130304
  Transmission Date: 20140127
  Serious: Yes (Other)
  Sender: FDA-Public Use
  Company Number: PHEH2013US003616

PATIENT
  Age: 27 Year
  Sex: Female

DRUGS (11)
  1. GILENYA [Suspect]
     Indication: MULTIPLE SCLEROSIS
     Dosage: 0.5 MG, QD
     Route: 048
     Dates: start: 20121231
  2. AMPYRA [Concomitant]
     Dosage: 10 MG, BID
     Route: 048
     Dates: start: 20121119
  3. OXYBUTYNIN [Concomitant]
     Dosage: 1 DF, BID
  4. PROTONIX [Concomitant]
     Dosage: 20 MG, QD
     Route: 048
  5. SINGULAIR [Concomitant]
     Dosage: 10 MG, QD
  6. SOLU-MEDROL [Concomitant]
     Dosage: UNK, QMO
     Route: 042
  7. TRANSDERM-SCOP [Concomitant]
     Dosage: UKN, 3 DAYS
     Route: 062
     Dates: start: 20121029
  8. VITAMIN D3 [Concomitant]
     Dosage: 1 DF, QD
     Route: 048
     Dates: start: 20120816
  9. KEFLEX [Concomitant]
     Dosage: 500 MG, BID
     Route: 048
     Dates: start: 20120320, end: 20120327
  10. KEFLEX [Concomitant]
     Dosage: 500 MG, BID
     Route: 048
     Dates: start: 20130102, end: 20130112
  11. PERCOCET [Concomitant]
     Dosage: UNK UKN, UNK
     Dates: end: 20130102

REACTIONS (11)
  - Optic neuritis [Unknown]
  - Panic attack [Unknown]
  - Ataxia [Recovering/Resolving]
  - Dysphagia [Unknown]
  - Ear discomfort [Unknown]
  - Ear pain [Unknown]
  - Hypoacusis [Unknown]
  - Chest discomfort [Unknown]
  - Lung disorder [Unknown]
  - Blood pressure increased [Unknown]
  - Dyspnoea [Unknown]
